FAERS Safety Report 7005020-9 (Version None)
Quarter: 2010Q3

REPORT INFORMATION
  Report Type: 
  Country: None (occurrence: None)
  Receive Date: 20100917
  Receipt Date: 20100909
  Transmission Date: 20110219
  Serious: Yes (Other)
  Sender: FDA-Public Use
  Company Number: 016010

PATIENT
  Sex: Female
  Weight: 77.1 kg

DRUGS (12)
  1. CERTOLIZUMAB PEGOL (CERTOLIZUMAB PEGOL) [Suspect]
     Indication: RHEUMATOID ARTHRITIS
     Dosage: SEE IMAGE
     Route: 058
     Dates: start: 20050906, end: 20060822
  2. CERTOLIZUMAB PEGOL (CERTOLIZUMAB PEGOL) [Suspect]
     Indication: RHEUMATOID ARTHRITIS
     Dosage: SEE IMAGE
     Route: 058
     Dates: start: 20060904, end: 20071127
  3. CERTOLIZUMAB PEGOL (CERTOLIZUMAB PEGOL) [Suspect]
     Indication: RHEUMATOID ARTHRITIS
     Dosage: SEE IMAGE
     Route: 058
     Dates: start: 20071211, end: 20100706
  4. PARACETAMOL [Concomitant]
  5. METHOTREXATE [Concomitant]
  6. FOLIC ACID [Concomitant]
  7. PREDNISONE [Concomitant]
  8. MOSAPRIDE [Concomitant]
  9. OMEPRAZOLE [Concomitant]
  10. PANKREOFLAT [Concomitant]
  11. TRIMEBUTINE [Concomitant]
  12. AGIOLAX [Concomitant]

REACTIONS (9)
  - ABDOMINAL PAIN [None]
  - ABORTION SPONTANEOUS [None]
  - DRUG EXPOSURE DURING PREGNANCY [None]
  - GASTRITIS EROSIVE [None]
  - HAEMORRHAGE [None]
  - HAEMORRHOIDS [None]
  - IRRITABLE BOWEL SYNDROME [None]
  - LIGAMENT RUPTURE [None]
  - PREGNANCY ON CONTRACEPTIVE [None]
